FAERS Safety Report 15287605 (Version 2)
Quarter: 2023Q1

REPORT INFORMATION
  Report Type: Report from Study
  Country: ES (occurrence: ES)
  Receive Date: 20180817
  Receipt Date: 20230310
  Transmission Date: 20230418
  Serious: Yes (Hospitalization)
  Sender: FDA-Public Use
  Company Number: None

PATIENT
  Age: 39 Year
  Sex: Male

DRUGS (3)
  1. ACETYLCYSTEINE [Suspect]
     Active Substance: ACETYLCYSTEINE
     Indication: Respiratory tract infection
     Dosage: 200 MG POWDER FOR ORAL SOLUTION EFG, 30 SACHETS
     Route: 048
     Dates: start: 20071210
  2. AMOXICILLIN [Suspect]
     Active Substance: AMOXICILLIN
     Indication: Respiratory tract infection
     Dosage: 500 MG CAPSULES EFG, 12 CAPSULES
     Route: 048
     Dates: start: 20071210
  3. DEFLAZACORT [Suspect]
     Active Substance: DEFLAZACORT
     Indication: Facial paralysis
     Dosage: 30 MG TABLETS, 10 TABLETS
     Route: 048
     Dates: start: 20071128, end: 20071228

REACTIONS (1)
  - Toxic epidermal necrolysis [Recovered/Resolved with Sequelae]

NARRATIVE: CASE EVENT DATE: 20071228
